FAERS Safety Report 24292178 (Version 1)
Quarter: 2024Q3

REPORT INFORMATION
  Report Type: Spontaneous
  Country: US (occurrence: None)
  Receive Date: 20240906
  Receipt Date: 20240906
  Transmission Date: 20241017
  Serious: No
  Sender: DOMPE FARMACEUTICI
  Company Number: US-FARMAPROD-202307-2078

PATIENT
  Sex: Female

DRUGS (13)
  1. OXERVATE [Suspect]
     Active Substance: CENEGERMIN-BKBJ
     Indication: Neurotrophic keratopathy
     Route: 047
     Dates: start: 20230621
  2. OXERVATE [Suspect]
     Active Substance: CENEGERMIN-BKBJ
  3. LATANOPROST [Concomitant]
     Active Substance: LATANOPROST
  4. PREDNISOLONE-BROMFENAC [Concomitant]
  5. COLACE [Concomitant]
     Active Substance: DOCUSATE SODIUM
  6. STERILE EYE DROPS [Concomitant]
     Active Substance: DEXTRAN 70\POLYETHYLENE GLYCOL 400\POVIDONE\TETRAHYDROZOLINE HYDROCHLORIDE
  7. TEARS LUBRICANT [Concomitant]
     Active Substance: GLYCERIN\HYPROMELLOSES\POLYETHYLENE GLYCOL 400
  8. REFRESH TEARS [Concomitant]
     Active Substance: CARBOXYMETHYLCELLULOSE SODIUM
  9. OMEGA-3 ACIDS [Concomitant]
     Active Substance: OMEGA-3 FATTY ACIDS
  10. ASPIRIN [Concomitant]
     Active Substance: ASPIRIN
  11. ZYRTEC [Concomitant]
     Active Substance: CETIRIZINE HYDROCHLORIDE
  12. AMLODIPINE BESYLATE [Concomitant]
     Active Substance: AMLODIPINE BESYLATE
  13. ATORVASTATIN CALCIUM [Concomitant]
     Active Substance: ATORVASTATIN CALCIUM

REACTIONS (5)
  - Eye pain [Recovering/Resolving]
  - Photophobia [Not Recovered/Not Resolved]
  - Eye irritation [Recovered/Resolved]
  - Superficial injury of eye [Recovered/Resolved]
  - Eye irritation [Unknown]
